FAERS Safety Report 6029811-6 (Version None)
Quarter: 2008Q4

REPORT INFORMATION
  Report Type: 
  Country: None (occurrence: None)
  Receive Date: 20081222
  Receipt Date: 20080918
  Transmission Date: 20090506
  Serious: No
  Sender: FDA-Public Use
  Company Number: US-WYE-H06057608

PATIENT
  Sex: Female

DRUGS (2)
  1. PRISTIQ [Suspect]
     Dosage: 50 MG 1X 1 DAY,ORAL
     Route: 048
     Dates: start: 20080918
  2. ZYRTEC [Concomitant]

REACTIONS (1)
  - CONFUSIONAL STATE [None]
